FAERS Safety Report 11615215 (Version 3)
Quarter: 2016Q2

REPORT INFORMATION
  Report Type: Spontaneous
  Country: GB (occurrence: GB)
  Receive Date: 20151009
  Receipt Date: 20160617
  Transmission Date: 20160815
  Serious: Yes (Life-Threatening, Other)
  Sender: FDA-Public Use
  Company Number: GB-BAYER-2015-435665

PATIENT
  Age: 53 Year
  Sex: Female
  Weight: 66 kg

DRUGS (7)
  1. MIRENA [Suspect]
     Active Substance: LEVONORGESTREL
     Indication: MENORRHAGIA
     Dosage: 20 MCG/24HR, CONT
     Route: 015
     Dates: start: 20090203, end: 201007
  2. AMLODIPINE [Concomitant]
     Active Substance: AMLODIPINE BESYLATE
     Dosage: 10 MG, QD
  3. THIAMINE. [Concomitant]
     Active Substance: THIAMINE
  4. ENALAPRIL [Concomitant]
     Active Substance: ENALAPRIL
     Dosage: 20 MG, QD
  5. ENDOMETHASON [Concomitant]
     Active Substance: DEXAMETHASONE\HYDROCORTISONE ACETATE\PARAFORMALDEHYDE
  6. MIRENA [Suspect]
     Active Substance: LEVONORGESTREL
     Indication: MENORRHAGIA
     Dosage: 20 MCG/24HR, CONT
     Route: 015
     Dates: start: 20100902, end: 201510
  7. FOLIC ACID. [Concomitant]
     Active Substance: FOLIC ACID

REACTIONS (5)
  - Device dislocation [None]
  - Device use error [None]
  - Drug ineffective [None]
  - Breast cancer [Unknown]
  - Device physical property issue [None]

NARRATIVE: CASE EVENT DATE: 201007
